FAERS Safety Report 4286946-6 (Version None)
Quarter: 2004Q1

REPORT INFORMATION
  Report Type: 
  Country: None (occurrence: None)
  Receive Date: 20040206
  Receipt Date: 20031125
  Transmission Date: 20041129
  Serious: Yes (Life-Threatening, Hospitalization, Other)
  Sender: FDA-Public Use
  Company Number: WAES 0312USA00088

PATIENT
  Age: 59 Year
  Sex: Female
  Weight: 159 kg

DRUGS (8)
  1. VICODIN [Concomitant]
     Indication: ARTHRITIS
     Route: 048
  2. ALBUTEROL [Concomitant]
     Indication: CHRONIC OBSTRUCTIVE AIRWAYS DISEASE
     Route: 048
  3. OPTIVAR OPHTHALMIC SOLUTION [Concomitant]
     Indication: EYE ALLERGY
     Route: 047
  4. NEXIUM [Concomitant]
     Indication: GASTRIC ULCER
     Route: 048
  5. MAXZIDE [Concomitant]
     Indication: OEDEMA
     Route: 048
  6. MAXZIDE [Concomitant]
     Indication: CARDIAC FAILURE CONGESTIVE
     Route: 048
  7. SINGULAIR [Suspect]
     Indication: HYPERSENSITIVITY
     Route: 048
     Dates: start: 20030725, end: 20030728
  8. SINGULAIR [Suspect]
     Indication: ASTHMA
     Route: 048
     Dates: start: 20030725, end: 20030728

REACTIONS (4)
  - CARDIAC FAILURE CONGESTIVE [None]
  - DRUG HYPERSENSITIVITY [None]
  - HYPOVENTILATION [None]
  - RESPIRATORY FAILURE [None]
